FAERS Safety Report 7433456-0 (Version None)
Quarter: 2011Q2

REPORT INFORMATION
  Report Type: 
  Country: None (occurrence: None)
  Receive Date: 20110422
  Receipt Date: 20110408
  Transmission Date: 20111010
  Serious: Yes (Death)
  Sender: FDA-Public Use
  Company Number: FR-CELGENEUS-056-21880-11040911

PATIENT
  Sex: Male
  Weight: 50 kg

DRUGS (8)
  1. ENDOXAN [Suspect]
     Indication: MULTIPLE MYELOMA
     Dosage: .0667 GRAM
     Route: 051
     Dates: start: 20100726, end: 20110111
  2. DEXAMETHASONE [Concomitant]
     Dosage: 5.7143 MILLIGRAM
     Route: 048
     Dates: start: 20100726, end: 20110111
  3. DEXAMETHASONE [Concomitant]
     Indication: MULTIPLE MYELOMA
     Dosage: 5.7143 MILLIGRAM
     Route: 048
     Dates: start: 20100125, end: 20100718
  4. REVLIMID [Suspect]
     Indication: MULTIPLE MYELOMA
     Dosage: 25 MILLIGRAM
     Route: 048
     Dates: start: 20100125, end: 20100711
  5. NEORECORMON [Concomitant]
     Route: 058
     Dates: start: 20100416, end: 20100716
  6. DOXORUBICIN HCL [Concomitant]
     Route: 051
  7. DEXAMETHASONE [Concomitant]
     Dosage: 1.3333 MILLIGRAM
     Route: 051
  8. VINCRISTINE [Concomitant]
     Route: 051

REACTIONS (1)
  - BRONCHIAL CARCINOMA [None]
